FAERS Safety Report 15382726 (Version 2)
Quarter: 2019Q2

REPORT INFORMATION
  Report Type: Report from Study
  Country: US (occurrence: US)
  Receive Date: 20180913
  Receipt Date: 20190509
  Transmission Date: 20190711
  Serious: Yes (Hospitalization)
  Sender: FDA-Public Use
  Company Number: US-ASTELLAS-2018US013155

PATIENT
  Sex: Male

DRUGS (2)
  1. ENZALUTAMIDE [Suspect]
     Active Substance: ENZALUTAMIDE
     Route: 048
  2. ENZALUTAMIDE [Suspect]
     Active Substance: ENZALUTAMIDE
     Indication: PROSTATE CANCER STAGE 0
     Route: 048
     Dates: start: 20180210

REACTIONS (5)
  - Treatment noncompliance [Unknown]
  - Urinary tract infection [Recovered/Resolved]
  - Hypoacusis [Unknown]
  - Asthenia [Unknown]
  - Gait disturbance [Unknown]
